FAERS Safety Report 6212549-X (Version None)
Quarter: 2009Q2

REPORT INFORMATION
  Report Type: 
  Country: None (occurrence: None)
  Receive Date: 20090603
  Receipt Date: 20090528
  Transmission Date: 20091009
  Serious: Yes (Other)
  Sender: FDA-Public Use
  Company Number: GB-ASTRAZENECA-2009GB01121

PATIENT
  Age: 73 Year
  Sex: Male

DRUGS (4)
  1. CRESTOR [Suspect]
     Indication: RETINAL VEIN OCCLUSION
     Route: 048
     Dates: start: 20081223, end: 20090101
  2. NU-SEALS [Concomitant]
     Dosage: 75 MG
  3. ASASANTIN RETARD [Concomitant]
  4. PANTOPRAZOLE SODIUM [Concomitant]
     Dosage: 20 MG

REACTIONS (4)
  - BLOOD CREATINE PHOSPHOKINASE INCREASED [None]
  - C-REACTIVE PROTEIN INCREASED [None]
  - MYALGIA [None]
  - RED BLOOD CELL SEDIMENTATION RATE INCREASED [None]
